FAERS Safety Report 8850223 (Version 7)
Quarter: 2013Q3

REPORT INFORMATION
  Report Type: Report from Study
  Country: DE (occurrence: DE)
  Receive Date: 20121019
  Receipt Date: 20130911
  Transmission Date: 20140515
  Serious: Yes (Hospitalization)
  Sender: FDA-Public Use
  Company Number: DE-CELGENEUS-062-C5013-12092920

PATIENT
  Age: 55 Year
  Sex: Male
  Weight: 75 kg

DRUGS (14)
  1. CC-5013 [Suspect]
     Indication: CHRONIC LYMPHOCYTIC LEUKAEMIA
     Dosage: DOSE LEVEL 0
     Route: 048
     Dates: start: 20120911, end: 20120928
  2. CC-5013 [Suspect]
     Dosage: DOSE LEVEL 0
     Route: 048
     Dates: start: 20121009, end: 20121010
  3. CC-5013 [Suspect]
     Dosage: DOSE LEVEL -1
     Route: 048
     Dates: start: 20121205, end: 20121208
  4. ACETYLSALICYLIC ACID [Concomitant]
     Indication: PROPHYLAXIS
     Dosage: 100 MILLIGRAM
     Route: 048
     Dates: start: 20120911
  5. NOVAMINSULFON [Concomitant]
     Indication: PAIN
     Route: 048
     Dates: start: 20120911, end: 20120914
  6. IBUPROFEN [Concomitant]
     Indication: PAIN
     Route: 048
     Dates: start: 20120910, end: 20120925
  7. OMEPRAZOLE [Concomitant]
     Indication: GASTRITIS
     Dosage: 20 MILLIGRAM
     Route: 048
     Dates: start: 20120914, end: 20120924
  8. OMEPRAZOLE [Concomitant]
     Dosage: 40 MILLIGRAM
     Route: 048
     Dates: start: 20120924
  9. CERTOPARIN [Concomitant]
     Indication: THROMBOSIS PROPHYLAXIS
     Dosage: 3000 IU (INTERNATIONAL UNIT)
     Route: 058
     Dates: start: 20120926, end: 20121001
  10. CERTOPARIN [Concomitant]
     Dosage: 3000 IU (INTERNATIONAL UNIT)
     Route: 058
     Dates: start: 20121011, end: 20121020
  11. ZOLPIDEM [Concomitant]
     Indication: INSOMNIA
     Route: 048
     Dates: start: 20120927, end: 20121001
  12. ZOLPIDEM [Concomitant]
     Dosage: 1500 MILLIGRAM
     Route: 048
     Dates: start: 20121016, end: 20121027
  13. TEMAZEPAM [Concomitant]
     Indication: INSOMNIA
     Route: 048
     Dates: start: 20121010, end: 20121020
  14. TEMAZEPAM [Concomitant]
     Dosage: 1500 MILLIGRAM
     Route: 048
     Dates: start: 20121016, end: 20121027

REACTIONS (2)
  - Impaired healing [Recovered/Resolved]
  - Epididymitis [Recovered/Resolved]
